FAERS Safety Report 14236869 (Version 2)
Quarter: 2018Q1

REPORT INFORMATION
  Report Type: Spontaneous
  Country: NZ (occurrence: NZ)
  Receive Date: 20171129
  Receipt Date: 20180124
  Transmission Date: 20180508
  Serious: Yes (Death, Other)
  Sender: FDA-Public Use
  Company Number: NZ-ABBVIE-17P-118-2175253-00

PATIENT
  Age: 73 Year
  Sex: Male
  Weight: 88.1 kg

DRUGS (2)
  1. ADALIMUMAB [Suspect]
     Active Substance: ADALIMUMAB
     Indication: ANKYLOSING SPONDYLITIS
     Route: 058
     Dates: start: 20141118, end: 201704
  2. METHOTREXATE. [Concomitant]
     Active Substance: METHOTREXATE
     Indication: PRODUCT USED FOR UNKNOWN INDICATION
     Dates: start: 2007, end: 2016

REACTIONS (1)
  - Chronic myelomonocytic leukaemia [Fatal]

NARRATIVE: CASE EVENT DATE: 20170111
